FAERS Safety Report 6387755-4 (Version None)
Quarter: 2009Q4

REPORT INFORMATION
  Report Type: 
  Country: None (occurrence: None)
  Receive Date: 20091005
  Receipt Date: 20090929
  Transmission Date: 20100525
  Serious: Yes (Hospitalization)
  Sender: FDA-Public Use
  Company Number: US-BRISTOL-MYERS SQUIBB COMPANY-14649396

PATIENT
  Age: 66 Year
  Sex: Male
  Weight: 65 kg

DRUGS (22)
  1. CARBOPLATIN [Suspect]
     Indication: NON-SMALL CELL LUNG CANCER
     Route: 042
     Dates: start: 20090505
  2. PACLITAXEL [Suspect]
     Indication: NON-SMALL CELL LUNG CANCER
     Route: 042
     Dates: start: 20090505
  3. AXITINIB [Suspect]
     Indication: NON-SMALL CELL LUNG CANCER
     Dosage: RECENT INF ON 14MAY09; INTERRUPTED ON 14MAY09; REDUCED TO 3MG 2/D
     Route: 048
     Dates: start: 20090505
  4. ADVAIR DISKUS 100/50 [Concomitant]
     Dates: start: 20090422
  5. ALBUTEROL [Concomitant]
     Dates: start: 20090422
  6. PROVENTIL-HFA [Concomitant]
  7. LOPRESSOR [Concomitant]
     Indication: HYPERTENSION
  8. SPIRIVA [Concomitant]
     Indication: DYSPNOEA
     Dates: start: 20090422
  9. HYDROCODONE [Concomitant]
     Indication: PAIN
     Dates: start: 20090422
  10. DECADRON [Concomitant]
     Dosage: ALSO IV; 04MAY09 TO 05MAY09 AND THEN 04MAY09
     Route: 048
     Dates: start: 20090504, end: 20090505
  11. BENADRYL [Concomitant]
     Dates: start: 20090505
  12. TAGAMET [Concomitant]
     Dates: start: 20090505
  13. KYTRIL [Concomitant]
     Indication: PREMEDICATION
     Dosage: ALSO 05MAY09 TO ONGOING
     Dates: start: 20090505, end: 20090512
  14. KYTRIL [Concomitant]
     Indication: NAUSEA
     Dosage: ALSO 05MAY09 TO ONGOING
     Dates: start: 20090505, end: 20090512
  15. HYDROCORTISONE [Concomitant]
     Dates: start: 20090512
  16. DESITIN [Concomitant]
     Indication: HAEMORRHOIDS
     Dates: start: 20090512
  17. LIDOCAINE [Concomitant]
     Indication: HAEMORRHOIDS
     Dates: start: 20090512
  18. MAGNESIUM CITRATE [Concomitant]
     Dates: start: 20090510, end: 20090510
  19. COLACE [Concomitant]
     Dates: start: 20090510
  20. MIRALAX [Concomitant]
     Indication: CONSTIPATION
     Dates: start: 20090512
  21. SODIUM CHLORIDE [Concomitant]
     Indication: DEHYDRATION
     Dates: start: 20090512, end: 20090512
  22. DEXAMETHASONE 0.5MG TAB [Concomitant]
     Indication: NAUSEA
     Dates: start: 20090512, end: 20090512

REACTIONS (2)
  - DIVERTICULITIS [None]
  - NEUTROPENIA [None]
